FAERS Safety Report 15061429 (Version 2)
Quarter: 2019Q3

REPORT INFORMATION
  Report Type: Spontaneous
  Country: US (occurrence: US)
  Receive Date: 20180625
  Receipt Date: 20190702
  Transmission Date: 20191004
  Serious: No
  Sender: FDA-Public Use
  Company Number: US-ROCHE-2104026

PATIENT
  Sex: Male

DRUGS (1)
  1. XELODA [Suspect]
     Active Substance: CAPECITABINE
     Indication: RECTAL CANCER
     Dosage: ONGOING:UNKNOWN
     Route: 048
     Dates: start: 2018

REACTIONS (1)
  - Product dose omission [Unknown]

NARRATIVE: CASE EVENT DATE: 2018
